FAERS Safety Report 11369574 (Version 1)
Quarter: 2015Q3

REPORT INFORMATION
  Report Type: Spontaneous
  Country: US (occurrence: None)
  Receive Date: 20150811
  Receipt Date: 20150811
  Transmission Date: 20151125
  Serious: Yes (Other)
  Sender: FDA-Public Use
  Company Number: None

PATIENT
  Age: 67 Year
  Sex: Male

DRUGS (11)
  1. ADEMPAS [Suspect]
     Active Substance: RIOCIGUAT
     Indication: PULMONARY ARTERIAL HYPERTENSION
     Route: 048
     Dates: start: 20150701, end: 20150718
  2. FAMOTIDINE. [Concomitant]
     Active Substance: FAMOTIDINE
  3. PROTONIX [Concomitant]
     Active Substance: PANTOPRAZOLE SODIUM
  4. UNASYN [Concomitant]
     Active Substance: AMPICILLIN SODIUM\SULBACTAM SODIUM
  5. TIOTROPIUM [Concomitant]
     Active Substance: TIOTROPIUM
  6. MOMETASONE [Concomitant]
     Active Substance: MOMETASONE
  7. COUMADIN [Concomitant]
     Active Substance: WARFARIN SODIUM
  8. DILTIAZEM [Concomitant]
     Active Substance: DILTIAZEM
  9. ALBUTEROL. [Concomitant]
     Active Substance: ALBUTEROL
  10. FUROSEMIDE. [Concomitant]
     Active Substance: FUROSEMIDE
  11. ATORVASTATIN [Concomitant]
     Active Substance: ATORVASTATIN

REACTIONS (3)
  - Rash pruritic [None]
  - Rash [None]
  - Eosinophil count increased [None]

NARRATIVE: CASE EVENT DATE: 20150710
